FAERS Safety Report 4570461-6 (Version None)
Quarter: 2005Q1

REPORT INFORMATION
  Report Type: 
  Country: None (occurrence: None)
  Receive Date: 20050204
  Receipt Date: 20050120
  Transmission Date: 20050727
  Serious: Yes (Hospitalization)
  Sender: FDA-Public Use
  Company Number: NL-JNJFOC-20050200122

PATIENT
  Sex: Female

DRUGS (12)
  1. CORDIUM [Suspect]
     Indication: ATRIAL FIBRILLATION
     Route: 049
  2. METILDIGOXIN [Concomitant]
     Indication: ATRIAL FIBRILLATION
     Route: 049
  3. DILTIAZEM HYDROCHLORIDE [Concomitant]
     Indication: HYPERTENSION
     Route: 049
  4. WARFARIN SODIUM [Concomitant]
     Indication: ATRIAL FIBRILLATION
     Route: 049
  5. FAMOTIDINE [Concomitant]
     Indication: GASTRITIS
     Route: 049
  6. URSODEOXYCHOLIC ACID [Concomitant]
     Route: 049
  7. STOMACHICS AND DIGESTIVES [Concomitant]
     Route: 049
  8. STOMACHICS AND DIGESTIVES [Concomitant]
     Route: 049
  9. STOMACHICS AND DIGESTIVES [Concomitant]
     Route: 049
  10. STOMACHICS AND DIGESTIVES [Concomitant]
     Route: 049
  11. MAGNESIUM OXIDE [Concomitant]
     Route: 049
  12. ALLOPURINOL [Concomitant]
     Route: 049

REACTIONS (10)
  - ALANINE AMINOTRANSFERASE INCREASED [None]
  - ASPARTATE AMINOTRANSFERASE INCREASED [None]
  - ATRIAL FIBRILLATION [None]
  - BLOOD LACTATE DEHYDROGENASE INCREASED [None]
  - CONVULSION [None]
  - GAMMA-GLUTAMYLTRANSFERASE INCREASED [None]
  - HYPOKALAEMIA [None]
  - SYNCOPE [None]
  - THERAPEUTIC RESPONSE DECREASED [None]
  - VENTRICULAR TACHYCARDIA [None]
